FAERS Safety Report 4562786-5 (Version None)
Quarter: 2005Q1

REPORT INFORMATION
  Report Type: 
  Country: None (occurrence: None)
  Receive Date: 20050121
  Receipt Date: 20050107
  Transmission Date: 20050727
  Serious: Yes (Other)
  Sender: FDA-Public Use
  Company Number: 2005009795

PATIENT
  Age: 75 Year
  Sex: Female
  Weight: 69 kg

DRUGS (7)
  1. AMLODIPINE [Suspect]
     Indication: HYPERTENSION
     Dosage: (5 MG) ORAL
     Route: 048
     Dates: start: 20041103, end: 20041125
  2. ENALAPRIL MALEATE [Concomitant]
  3. CLOBETASONE BUTYRATE (CLOBETASONE BUTYRATE) [Concomitant]
  4. LACTULOSE [Concomitant]
  5. ESOMEPRAZOLE (ESOMEPRAZOLE) [Concomitant]
  6. ATENOLOL [Concomitant]
  7. EMOLLIENTS AND PROTECTIVES (EMMOLIENTS AND PROTECTIVES) [Concomitant]

REACTIONS (8)
  - ASTHENOPIA [None]
  - BLOOD PRESSURE SYSTOLIC INCREASED [None]
  - DRY EYE [None]
  - EYE PRURITUS [None]
  - INSOMNIA [None]
  - JOINT SWELLING [None]
  - LACRIMATION INCREASED [None]
  - VISUAL DISTURBANCE [None]
